FAERS Safety Report 10687324 (Version 1)
Quarter: 2014Q4

REPORT INFORMATION
  Report Type: Spontaneous
  Country: IT (occurrence: None)
  Receive Date: 20141230
  Receipt Date: 20141230
  Transmission Date: 20150529
  Serious: Yes (Other)
  Sender: FDA-Public Use
  Company Number: 2691501

PATIENT

DRUGS (5)
  1. ATROPINE [Concomitant]
     Active Substance: ATROPINE
  2. FLUOROURACIL. [Suspect]
     Active Substance: FLUOROURACIL
     Indication: COLORECTAL CANCER METASTATIC
     Dosage: 800 MG/M2 MILLIGRAM(S)/SQ.METER,
  3. LEUCOVORIN [Suspect]
     Active Substance: LEUCOVORIN
     Indication: COLORECTAL CANCER METASTATIC
     Dosage: 250 MG/M2 MILLIGRAM(S)/SQ. METER
     Route: 041
  4. IRINOTECAN HYDROCHLORIDE. [Suspect]
     Active Substance: IRINOTECAN HYDROCHLORIDE
     Indication: COLORECTAL CANCER METASTATIC
     Dosage: 200 MG/M2 MILLIGRAM(S)/SQ.METER;
     Route: 041
  5. BEVACIZUMAB [Suspect]
     Active Substance: BEVACIZUMAB
     Indication: COLORECTAL CANCER METASTATIC

REACTIONS (1)
  - Myocardial infarction [None]
